FAERS Safety Report 7315074-8 (Version None)
Quarter: 2011Q1

REPORT INFORMATION
  Report Type: 
  Country: None (occurrence: None)
  Receive Date: 20110225
  Receipt Date: 20100419
  Transmission Date: 20110831
  Serious: No
  Sender: FDA-Public Use
  Company Number: US-MYLANLABS-2010S1005398

PATIENT
  Age: 15 Year
  Sex: Female
  Weight: 72.58 kg

DRUGS (3)
  1. AMNESTEEM [Suspect]
     Route: 048
     Dates: start: 20091201, end: 20100108
  2. AMNESTEEM [Suspect]
     Indication: ACNE CYSTIC
     Route: 048
     Dates: start: 20091001, end: 20091201
  3. AMNESTEEM [Suspect]
     Route: 048
     Dates: start: 20100301

REACTIONS (1)
  - HEADACHE [None]
